FAERS Safety Report 6388591-5 (Version None)
Quarter: 2009Q4

REPORT INFORMATION
  Report Type: 
  Country: None (occurrence: None)
  Receive Date: 20091005
  Receipt Date: 20090927
  Transmission Date: 20100525
  Serious: Yes (Other)
  Sender: FDA-Public Use
  Company Number: US-JNJFOC-20090908813

PATIENT
  Sex: Female

DRUGS (1)
  1. EXTRA STRENGTH TYLENOL [Suspect]
     Indication: PAIN
     Route: 048

REACTIONS (8)
  - BODY TEMPERATURE DECREASED [None]
  - CHILLS [None]
  - DIARRHOEA [None]
  - MUSCLE SPASMS [None]
  - PAIN [None]
  - PRODUCT TAMPERING [None]
  - PYREXIA [None]
  - RETCHING [None]
